FAERS Safety Report 10484705 (Version 1)
Quarter: 2014Q3

REPORT INFORMATION
  Report Type: Spontaneous
  Country: JP (occurrence: JP)
  Receive Date: 20140930
  Receipt Date: 20140930
  Transmission Date: 20150326
  Serious: Yes (Hospitalization)
  Sender: FDA-Public Use
  Company Number: JP-US-EMD SERONO, INC.-7322021

PATIENT
  Age: 32 Year
  Sex: Female

DRUGS (2)
  1. SEROPHENE [Suspect]
     Active Substance: CLOMIPHENE CITRATE
     Indication: PRODUCT USED FOR UNKNOWN INDICATION
     Route: 048
  2. HMG                                /01277604/ [Concomitant]
     Indication: OVULATION INDUCTION

REACTIONS (4)
  - Premature rupture of membranes [Unknown]
  - Amniotic cavity infection [Unknown]
  - Premature delivery [Unknown]
  - Twin pregnancy [Unknown]
